FAERS Safety Report 5596821-2 (Version None)
Quarter: 2008Q1

REPORT INFORMATION
  Report Type: 
  Country: None (occurrence: None)
  Receive Date: 20080119
  Receipt Date: 20080111
  Transmission Date: 20080703
  Serious: Yes (Other)
  Sender: FDA-Public Use
  Company Number: US-PFIZER INC-2008003668

PATIENT
  Sex: Female
  Weight: 75 kg

DRUGS (12)
  1. CELEBREX [Suspect]
     Indication: ARTHRALGIA
     Route: 048
  2. CHANTIX [Suspect]
     Indication: SMOKING CESSATION THERAPY
  3. METFORMIN HCL [Concomitant]
  4. SITAGLIPTIN [Concomitant]
  5. INSULIN GLARGINE [Concomitant]
  6. VICODIN [Concomitant]
  7. LISINOPRIL [Concomitant]
  8. NORVASC [Concomitant]
  9. LOVASTATIN [Concomitant]
  10. VALSARTAN [Concomitant]
  11. EVENING PRIMROSE OIL [Concomitant]
  12. BLACK COHOSH [Concomitant]

REACTIONS (3)
  - BLOOD GLUCOSE INCREASED [None]
  - HOT FLUSH [None]
  - NOCTURIA [None]
